FAERS Safety Report 7693666-4 (Version None)
Quarter: 2011Q3

REPORT INFORMATION
  Report Type: 
  Country: None (occurrence: None)
  Receive Date: 20110819
  Receipt Date: 20110817
  Transmission Date: 20111222
  Serious: No
  Sender: FDA-Public Use
  Company Number: US-PFIZER INC-2011190309

PATIENT
  Sex: Female

DRUGS (6)
  1. ADVIL LIQUI-GELS [Suspect]
     Indication: MUSCULOSKELETAL STIFFNESS
     Dosage: UNK
     Route: 048
     Dates: start: 20020101, end: 20110814
  2. ACETYLSALICYLIC ACID [Concomitant]
     Dosage: UNK
  3. ADVIL LIQUI-GELS [Suspect]
     Indication: HEADACHE
  4. DILANTIN [Concomitant]
     Indication: EPILEPSY
     Dosage: UNK
  5. ACTOS [Concomitant]
     Indication: DIABETES MELLITUS
     Dosage: UNK
  6. PHENOBARBITAL [Concomitant]
     Indication: EPILEPSY
     Dosage: UNK

REACTIONS (2)
  - HEADACHE [None]
  - FATIGUE [None]
